FAERS Safety Report 5414951-2 (Version None)
Quarter: 2007Q3

REPORT INFORMATION
  Report Type: 
  Country: None (occurrence: None)
  Receive Date: 20070813
  Receipt Date: 20070813
  Transmission Date: 20080115
  Serious: No
  Sender: FDA-Public Use
  Company Number: None

PATIENT
  Sex: Female
  Weight: 81.6475 kg

DRUGS (1)
  1. OPTIRAY 350 [Suspect]
     Dosage: 100CC IV RT AC
     Route: 042

REACTIONS (2)
  - ERYTHEMA [None]
  - URTICARIA [None]
